FAERS Safety Report 15286257 (Version 2)
Quarter: 2018Q3

REPORT INFORMATION
  Report Type: Report from Study
  Country: None (occurrence: US)
  Receive Date: 20180816
  Receipt Date: 20180830
  Transmission Date: 20181010
  Serious: Yes (Hospitalization, Other)
  Sender: FDA-Public Use
  Company Number: US-BAUSCH-BL-2018-022497

PATIENT
  Sex: Male

DRUGS (1)
  1. XIFAXAN [Suspect]
     Active Substance: RIFAXIMIN
     Indication: HEPATIC FAILURE
     Dosage: FOR THREE YEARS
     Route: 048
     Dates: start: 2015

REACTIONS (7)
  - Confusional state [Recovered/Resolved]
  - Renal disorder [Recovered/Resolved]
  - Coma [Recovered/Resolved]
  - Amnesia [Recovered/Resolved]
  - Blood potassium decreased [Recovered/Resolved]
  - Ill-defined disorder [Recovered/Resolved]
  - Hospitalisation [Recovered/Resolved]

NARRATIVE: CASE EVENT DATE: 2018
